FAERS Safety Report 7361285-5 (Version None)
Quarter: 2011Q1

REPORT INFORMATION
  Report Type: 
  Country: None (occurrence: None)
  Receive Date: 20110318
  Receipt Date: 20110314
  Transmission Date: 20110831
  Serious: Yes (Other)
  Sender: FDA-Public Use
  Company Number: A0885112B

PATIENT
  Sex: Male
  Weight: 61 kg

DRUGS (3)
  1. LAPATINIB [Suspect]
     Dosage: 1500MG PER DAY
     Route: 048
     Dates: start: 20100830
  2. CISPLATIN [Suspect]
     Dosage: 100MGM2 CYCLIC
     Route: 042
     Dates: start: 20100907
  3. RADIOTHERAPY [Concomitant]
     Route: 061
     Dates: start: 20100907

REACTIONS (1)
  - CALCIUM IONISED DECREASED [None]
